FAERS Safety Report 8230716-0 (Version None)
Quarter: 2012Q1

REPORT INFORMATION
  Report Type: 
  Country: None (occurrence: None)
  Receive Date: 20120321
  Receipt Date: 20120303
  Transmission Date: 20120608
  Serious: Yes (Hospitalization)
  Sender: FDA-Public Use
  Company Number: CIO12003206

PATIENT
  Sex: Male

DRUGS (1)
  1. METAMUCIL-2 [Suspect]
     Dosage: ORAL
     Route: 048

REACTIONS (4)
  - DRUG INEFFECTIVE [None]
  - PRODUCT QUALITY ISSUE [None]
  - DIVERTICULITIS [None]
  - LIQUID PRODUCT PHYSICAL ISSUE [None]
